FAERS Safety Report 4934763-3 (Version None)
Quarter: 2006Q1

REPORT INFORMATION
  Report Type: 
  Country: None (occurrence: None)
  Receive Date: 20060307
  Receipt Date: 20050908
  Transmission Date: 20060701
  Serious: Yes (Hospitalization, Disabling, Other)
  Sender: FDA-Public Use
  Company Number: US-MERCK-0509USA01213

PATIENT
  Age: 83 Year
  Sex: Female
  Weight: 109 kg

DRUGS (2)
  1. VIOXX [Suspect]
     Indication: ARTHRALGIA
     Route: 048
     Dates: start: 20001001, end: 20040601
  2. VIOXX [Suspect]
     Indication: BACK PAIN
     Route: 048
     Dates: start: 20001001, end: 20040601

REACTIONS (35)
  - ABSCESS [None]
  - AMNESIA [None]
  - ANHEDONIA [None]
  - ANXIETY [None]
  - AORTIC ARTERIOSCLEROSIS [None]
  - AORTIC VALVE INCOMPETENCE [None]
  - BIFASCICULAR BLOCK [None]
  - BILE DUCT STONE [None]
  - BLINDNESS [None]
  - BRADYCARDIA [None]
  - BUNDLE BRANCH BLOCK RIGHT [None]
  - CEREBROVASCULAR ACCIDENT [None]
  - CHOLELITHIASIS [None]
  - CONSTIPATION [None]
  - DEPRESSION [None]
  - DIABETES MELLITUS NON-INSULIN-DEPENDENT [None]
  - DIVERTICULUM [None]
  - DUODENAL PERFORATION [None]
  - GOUT [None]
  - HAEMORRHOIDS [None]
  - HIATUS HERNIA [None]
  - HYPERTENSION [None]
  - LEUKOCYTOSIS [None]
  - LOWER GASTROINTESTINAL HAEMORRHAGE [None]
  - MITRAL VALVE INCOMPETENCE [None]
  - NODAL ARRHYTHMIA [None]
  - OSTEOARTHRITIS [None]
  - PAIN [None]
  - PARKINSON'S DISEASE [None]
  - RENAL FAILURE [None]
  - SICK SINUS SYNDROME [None]
  - SLEEP DISORDER [None]
  - SUBCUTANEOUS HAEMATOMA [None]
  - TRICUSPID VALVE INCOMPETENCE [None]
  - URETERAL DISORDER [None]
